FAERS Safety Report 16059732 (Version 1)
Quarter: 2019Q1

REPORT INFORMATION
  Report Type: Spontaneous
  Country: US (occurrence: US)
  Receive Date: 20190311
  Receipt Date: 20190311
  Transmission Date: 20190418
  Serious: No
  Sender: FDA-Public Use
  Company Number: US-EX USA HOLDINGS-EXHL20192172

PATIENT
  Sex: Female

DRUGS (1)
  1. BENZNIDAZOLE. [Suspect]
     Active Substance: BENZNIDAZOLE
     Indication: AMERICAN TRYPANOSOMIASIS
     Dosage: 1.5 TABLETS
     Route: 048
     Dates: start: 201901

REACTIONS (2)
  - Myalgia [Unknown]
  - Product use issue [None]
